FAERS Safety Report 6517325-6 (Version None)
Quarter: 2009Q4

REPORT INFORMATION
  Report Type: 
  Country: None (occurrence: None)
  Receive Date: 20091218
  Receipt Date: 20091208
  Transmission Date: 20100525
  Serious: Yes (Hospitalization, Other)
  Sender: FDA-Public Use
  Company Number: MOZO-1000247

PATIENT
  Age: 41 Year
  Sex: Male
  Weight: 71.7 kg

DRUGS (41)
  1. MOZOBIL [Suspect]
     Indication: ACUTE MYELOID LEUKAEMIA
     Dosage: 6624 MCG, QD
     Dates: start: 20090604, end: 20090607
  2. MOZOBIL [Suspect]
     Indication: HAEMATOPOIETIC STEM CELL MOBILISATION
     Dosage: 6624 MCG, QD
     Dates: start: 20090604, end: 20090607
  3. THYMOGLOBULIN [Concomitant]
  4. ALUMINIUM W (ALUMINIUM, MAGNESIUM HYDROXIDE, SIMETICONE) [Concomitant]
  5. CARVEDILOL [Concomitant]
  6. COLECALCIFEROL (COLECALCIFEROL) [Concomitant]
  7. DEXTROSE [Concomitant]
  8. DULOXETINE HYDROCHLORIDE [Concomitant]
  9. FOLIC ACID [Concomitant]
  10. FOSCARNET [Concomitant]
  11. GABAPENTIN [Concomitant]
  12. GLIPIZIDE [Concomitant]
  13. HYDROCORTISONE SODIUM SUCCINATE [Concomitant]
  14. HYDROMORPHONE HCL [Concomitant]
  15. INSULIN REGULAR (HUMAN) (INSULIN HUMAN) [Concomitant]
  16. LISINOPRIL (LISINOPRIL DIHYDRATE) [Concomitant]
  17. LORAZEPAM [Concomitant]
  18. MOXIFLOXACIN HCL [Concomitant]
  19. MULTIPLE VITAMINS (ASCORBIC ACID, ERGOCALCIFEROL, FOLIC ACID, RETINOL, [Concomitant]
  20. OMEPRAZOLE [Concomitant]
  21. ONDANSETRON HYDROCHLORIDE [Concomitant]
  22. OXYBUTYNIN CHLORIDE (OXYBUTYNIN HYDROCHLORIDE) [Concomitant]
  23. OXYMORPHONE HYDROCHLORIDE (OXYMORPHONE HYDROCHLORIDE) [Concomitant]
  24. OYSTER SHELL CALCIUM (CALCIUM CARBONATE) [Concomitant]
  25. POSACONAZOLE [Concomitant]
  26. POTASSIUM CHLORIDE (POTASSIUM CHLORIDE, SODIUM CHLORIDE) [Concomitant]
  27. POTASSIUM PHOSPHATES [Concomitant]
  28. DOCUSATE SODIUM W SENNOSIDES (DOCUSATE SODIUM W SENNOSIDES) [Concomitant]
  29. SODIUM CHLORIDE 0.9% [Concomitant]
  30. SODIUM PHOSPHATE (SODIUM PHOSPHATE DIBASIC, SODIUM PHOSPHATE MONOBASIC [Concomitant]
  31. VALACICLOVIR HYDROCHLORIDE (VALACICLOVIR HYDROCHLORIDE) [Concomitant]
  32. ATOVAQUINE (ATOVAQUINE) [Concomitant]
  33. AMBIEN [Concomitant]
  34. ALLEGRA [Concomitant]
  35. IMODIUM [Concomitant]
  36. OXYMORPHONE HCL [Concomitant]
  37. SENOKOT (SENNA ALEXANDRINA) [Concomitant]
  38. PENTAMIDINE ISETHIONATE [Concomitant]
  39. BUDESONIDE [Concomitant]
  40. URSODIOL [Concomitant]
  41. NORVASC [Concomitant]

REACTIONS (14)
  - ACUTE GRAFT VERSUS HOST DISEASE IN SKIN [None]
  - ADRENAL INSUFFICIENCY [None]
  - BLOOD PHOSPHORUS INCREASED [None]
  - BLOOD UREA INCREASED [None]
  - CHILLS [None]
  - DYSURIA [None]
  - FLANK PAIN [None]
  - HAEMATURIA [None]
  - HYDRONEPHROSIS [None]
  - HYPOMAGNESAEMIA [None]
  - POLLAKIURIA [None]
  - RENAL FAILURE ACUTE [None]
  - TREMOR [None]
  - VIRAL HAEMORRHAGIC CYSTITIS [None]
